FAERS Safety Report 7551114-9 (Version None)
Quarter: 2011Q2

REPORT INFORMATION
  Report Type: 
  Country: None (occurrence: None)
  Receive Date: 20110616
  Receipt Date: 20090622
  Transmission Date: 20111010
  Serious: Yes (Other)
  Sender: FDA-Public Use
  Company Number: US-BAYER-2011-006328

PATIENT
  Age: 15 Year
  Sex: Male
  Weight: 50 kg

DRUGS (6)
  1. LASIX [Concomitant]
     Dosage: UNK
     Dates: start: 20010529
  2. COUMADIN [Concomitant]
     Dosage: ALTERNATE 6MG EVERY OTHER DAY AND 7MG EVERY OTHER DAY
     Route: 048
  3. PROTAMINE SULFATE [Concomitant]
     Dosage: UNK
     Dates: start: 20010529
  4. TRASYLOL [Suspect]
     Indication: AORTIC VALVE REPLACEMENT
     Dosage: UNK
     Route: 042
     Dates: start: 20010529, end: 20010529
  5. TRASYLOL [Suspect]
     Indication: VENTRICULAR SEPTAL DEFECT REPAIR
  6. HEPARIN [Concomitant]
     Dosage: UNK
     Dates: start: 20010529

REACTIONS (12)
  - INJURY [None]
  - UNEVALUABLE EVENT [None]
  - RENAL INJURY [None]
  - PAIN [None]
  - MULTI-ORGAN FAILURE [None]
  - ANXIETY [None]
  - FEAR [None]
  - CEREBROVASCULAR ACCIDENT [None]
  - RENAL IMPAIRMENT [None]
  - RENAL FAILURE [None]
  - STRESS [None]
  - EMOTIONAL DISTRESS [None]
